FAERS Safety Report 9542676 (Version 5)
Quarter: 2014Q1

REPORT INFORMATION
  Report Type: Spontaneous
  Country: IT (occurrence: IT)
  Receive Date: 20130923
  Receipt Date: 20140206
  Transmission Date: 20141002
  Serious: Yes (Hospitalization, Other)
  Sender: FDA-Public Use
  Company Number: IT-SANOFI-AVENTIS-2013SA092274

PATIENT
  Age: 43 Year
  Sex: Female

DRUGS (13)
  1. CLEXANE [Suspect]
     Indication: PRODUCT USED FOR UNKNOWN INDICATION
     Dosage: DOSE: 4000IU/ DIE
     Route: 065
  2. ACICLOVIR [Concomitant]
     Route: 048
     Dates: start: 20130807
  3. BACTRIM [Concomitant]
     Dosage: 2 CPR, MONDAY, WEDNESDAY, FRIDAY. STRENGTH: 960 MG
     Route: 048
     Dates: start: 20130807
  4. PREDNISONE [Concomitant]
     Route: 048
     Dates: start: 20130807, end: 20130808
  5. PERFALGAN [Concomitant]
     Dosage: DOSE: ON DAY OF CYCLE (1000 MG)
     Route: 042
     Dates: start: 20130809
  6. TRIMETON [Concomitant]
     Dosage: DOSE: ON DAY OF CYCLE (10 MG)
     Route: 042
     Dates: start: 20130809
  7. ZOFRAN [Concomitant]
     Dosage: DOSE: ON DAY OF CYCLE: 8 MG
     Route: 042
     Dates: start: 20130809
  8. LANSOPRAZOLE [Concomitant]
     Route: 048
     Dates: start: 20130807
  9. ATENOLOL [Concomitant]
     Route: 048
     Dates: start: 20080601
  10. RITUXIMAB [Concomitant]
     Indication: DIFFUSE LARGE B-CELL LYMPHOMA
     Route: 042
  11. RITUXIMAB [Concomitant]
     Indication: DIFFUSE LARGE B-CELL LYMPHOMA
     Route: 042
     Dates: start: 20130809
  12. RITUXIMAB [Concomitant]
     Indication: DIFFUSE LARGE B-CELL LYMPHOMA
     Route: 042
     Dates: start: 20130909
  13. ETHINYLESTRADIOL [Concomitant]
     Indication: ENDOMETRIOSIS
     Route: 067
     Dates: start: 20040802

REACTIONS (3)
  - Epilepsy [Recovered/Resolved]
  - Cerebral ischaemia [Recovered/Resolved]
  - Convulsion [Recovered/Resolved]
